FAERS Safety Report 25118638 (Version 1)
Quarter: 2025Q1

REPORT INFORMATION
  Report Type: Spontaneous
  Country: US (occurrence: US)
  Receive Date: 20250325
  Receipt Date: 20250325
  Transmission Date: 20250408
  Serious: Yes (Other)
  Sender: PFIZER
  Company Number: US-PFIZER INC-202500064139

PATIENT
  Age: 13 Year
  Sex: Male

DRUGS (1)
  1. SOLU-CORTEF [Suspect]
     Active Substance: HYDROCORTISONE SODIUM SUCCINATE
     Indication: Lethargy
     Route: 030

REACTIONS (2)
  - Loss of consciousness [Unknown]
  - Off label use [Unknown]
